FAERS Safety Report 15563370 (Version 4)
Quarter: 2018Q4

REPORT INFORMATION
  Report Type: Report from Study
  Country: US (occurrence: US)
  Receive Date: 20181029
  Receipt Date: 20181231
  Transmission Date: 20190205
  Serious: Yes (Hospitalization)
  Sender: FDA-Public Use
  Company Number: US-ACTELION-A-NJ2018-180801

PATIENT
  Age: 58 Year
  Sex: Female
  Weight: 64.4 kg

DRUGS (9)
  1. SILDENAFIL. [Concomitant]
     Active Substance: SILDENAFIL
     Dosage: 20 MG, TID
  2. SYMBICORT [Concomitant]
     Active Substance: BUDESONIDE\FORMOTEROL FUMARATE DIHYDRATE
     Dosage: 2 PUFF, BID
  3. VELETRI [Suspect]
     Active Substance: EPOPROSTENOL
     Indication: PULMONARY HYPERTENSION
     Dosage: 16.4 NG/KG, PER MIN
     Route: 042
  4. VELETRI [Suspect]
     Active Substance: EPOPROSTENOL
     Dosage: 14.88 NG/KG, PER MIN
     Route: 042
  5. PREDNISONE. [Concomitant]
     Active Substance: PREDNISONE
     Dosage: 10 MG, QD
     Route: 048
  6. LASIX [Concomitant]
     Active Substance: FUROSEMIDE
     Dosage: 120 MG, QD
  7. VELETRI [Suspect]
     Active Substance: EPOPROSTENOL
     Dosage: 15.77 NG/KG, PER MIN
     Route: 042
  8. UPTRAVI [Suspect]
     Active Substance: SELEXIPAG
     Indication: PULMONARY HYPERTENSION
     Dosage: 600 MCG, BID
     Route: 048
  9. SPIRONOLACTONE. [Concomitant]
     Active Substance: SPIRONOLACTONE
     Dosage: 25 MG, QD

REACTIONS (7)
  - Headache [Unknown]
  - Nausea [Unknown]
  - Pain in jaw [Unknown]
  - Therapy change [Unknown]
  - Transplant evaluation [Unknown]
  - Dyspnoea [Recovering/Resolving]
  - Adverse event [Unknown]
